FAERS Safety Report 5507254-9 (Version None)
Quarter: 2007Q4

REPORT INFORMATION
  Report Type: 
  Country: None (occurrence: None)
  Receive Date: 20071105
  Receipt Date: 20071105
  Transmission Date: 20080405
  Serious: Yes (Hospitalization, Other)
  Sender: FDA-Public Use
  Company Number: None

PATIENT
  Sex: Male
  Weight: 58.9676 kg

DRUGS (3)
  1. TRAZODONE HCL [Suspect]
     Indication: PSYCHOTIC DISORDER
     Dosage: 100 MG 1 X EA DAY
     Dates: start: 20050601, end: 20060301
  2. LEXAPRO [Suspect]
     Indication: DEPRESSION
     Dosage: 10 MG 1X EA DAY
     Dates: start: 20050601, end: 20060301
  3. LEXAPRO [Suspect]
     Indication: PSYCHOTIC DISORDER
     Dosage: 10 MG 1X EA DAY
     Dates: start: 20050601, end: 20060301

REACTIONS (2)
  - INTENTIONAL DRUG MISUSE [None]
  - SUICIDE ATTEMPT [None]
